FAERS Safety Report 9125807 (Version 2)
Quarter: 2014Q1

REPORT INFORMATION
  Report Type: Spontaneous
  Country: ES (occurrence: ES)
  Receive Date: 20130121
  Receipt Date: 20140311
  Transmission Date: 20141002
  Serious: Yes (Other)
  Sender: FDA-Public Use
  Company Number: ES-JNJFOC-20130108966

PATIENT
  Sex: 0

DRUGS (2)
  1. INFLIXIMAB, RECOMBINANT [Suspect]
     Indication: UVEITIS
     Dosage: MEAN DURATION OF TREATMENT: 10.4 MONTHS
     Route: 042
  2. INFLIXIMAB, RECOMBINANT [Suspect]
     Indication: BEHCET^S SYNDROME
     Dosage: MEAN DURATION OF TREATMENT: 10.4 MONTHS
     Route: 042

REACTIONS (1)
  - Prostatitis [Unknown]
